FAERS Safety Report 8344355-4 (Version None)
Quarter: 2012Q2

REPORT INFORMATION
  Report Type: 
  Country: None (occurrence: None)
  Receive Date: 20120508
  Receipt Date: 20120505
  Transmission Date: 20120825
  Serious: Yes (Other)
  Sender: FDA-Public Use
  Company Number: BR-ROCHE-1066146

PATIENT
  Sex: Female

DRUGS (2)
  1. RADIOTHERAPY [Concomitant]
     Indication: BREAST CANCER
  2. XELODA [Suspect]
     Indication: BREAST CANCER

REACTIONS (1)
  - METASTASES TO LUNG [None]
